FAERS Safety Report 7001002-1 (Version None)
Quarter: 2010Q3

REPORT INFORMATION
  Report Type: 
  Country: None (occurrence: None)
  Receive Date: 20100920
  Receipt Date: 20070817
  Transmission Date: 20110219
  Serious: Yes (Other)
  Sender: FDA-Public Use
  Company Number: US-ASTRAZENECA-2006UW27493

PATIENT
  Age: 471 Month
  Sex: Female
  Weight: 65 kg

DRUGS (12)
  1. SEROQUEL [Suspect]
     Indication: SCHIZOPHRENIA
     Route: 048
     Dates: start: 20030501, end: 20060314
  2. SEROQUEL [Suspect]
     Indication: DEPRESSION
     Route: 048
     Dates: start: 20030501, end: 20060314
  3. SEROQUEL [Suspect]
     Indication: ANXIETY
     Route: 048
     Dates: start: 20030501, end: 20060314
  4. SEROQUEL [Suspect]
     Dosage: 100- 400 MG
     Route: 048
     Dates: start: 20040327
  5. SEROQUEL [Suspect]
     Dosage: 100- 400 MG
     Route: 048
     Dates: start: 20040327
  6. SEROQUEL [Suspect]
     Dosage: 100- 400 MG
     Route: 048
     Dates: start: 20040327
  7. ZOLOFT [Concomitant]
     Route: 048
     Dates: start: 20020522
  8. LEXAPRO [Concomitant]
     Dosage: 10-20 MG
     Route: 048
     Dates: start: 20040407
  9. NORVASC [Concomitant]
     Indication: HYPERTENSION
     Dosage: 5 - 100 MG
     Route: 048
     Dates: start: 20020522
  10. EFFEXOR XR [Concomitant]
     Dosage: 150 - 300 MG
     Route: 048
     Dates: start: 20040407
  11. AMBIEN [Concomitant]
     Indication: INSOMNIA
     Route: 048
     Dates: start: 20040423
  12. ALBUTEROL SULATE [Concomitant]
     Indication: CHRONIC OBSTRUCTIVE PULMONARY DISEASE
     Dosage: 2 PUFFS FOUR TIMES A DAY
     Dates: start: 20041005

REACTIONS (1)
  - PANCREATITIS [None]
